FAERS Safety Report 6521725-8 (Version None)
Quarter: 2009Q4

REPORT INFORMATION
  Report Type: 
  Country: None (occurrence: None)
  Receive Date: 20091230
  Receipt Date: 20091216
  Transmission Date: 20100525
  Serious: Yes (Other)
  Sender: FDA-Public Use
  Company Number: SE-PFIZER INC-2009310967

PATIENT
  Age: 37 Year
  Sex: Male

DRUGS (4)
  1. XANOR DEPOT [Suspect]
     Indication: ANXIETY
     Dosage: 3 MG, 2X/DAY
     Route: 048
     Dates: start: 20081201
  2. XANOR DEPOT [Interacting]
  3. ERYMAX [Interacting]
     Indication: RESPIRATORY TRACT INFECTION
     Dosage: UNK
     Dates: start: 20091202
  4. FLUNITRAZEPAM [Concomitant]
     Dosage: UNK

REACTIONS (8)
  - ABNORMAL BEHAVIOUR [None]
  - AMNESIA [None]
  - DISTURBANCE IN ATTENTION [None]
  - DRUG INTERACTION [None]
  - EUPHORIC MOOD [None]
  - FATIGUE [None]
  - FEELING DRUNK [None]
  - TREMOR [None]
